FAERS Safety Report 13855895 (Version 1)
Quarter: 2017Q3

REPORT INFORMATION
  Report Type: Spontaneous
  Country: US (occurrence: US)
  Receive Date: 20170810
  Receipt Date: 20170810
  Transmission Date: 20171127
  Serious: Yes (Life-Threatening, Hospitalization, Other)
  Sender: FDA-Public Use
  Company Number: US-BRISTOL-MYERS SQUIBB COMPANY-BMS-2017-070996

PATIENT
  Sex: Male
  Weight: 63.49 kg

DRUGS (2)
  1. YERVOY [Suspect]
     Active Substance: IPILIMUMAB
     Indication: SMALL CELL LUNG CANCER
     Dosage: UNK UNK, Q3WK
     Route: 065
     Dates: start: 20170802
  2. OPDIVO [Suspect]
     Active Substance: NIVOLUMAB
     Indication: SMALL CELL LUNG CANCER
     Dosage: UNK UNK, Q3WK
     Route: 065
     Dates: start: 20170802

REACTIONS (5)
  - Dyspnoea [Unknown]
  - Tachycardia [Unknown]
  - Product use in unapproved indication [Unknown]
  - Heart rate abnormal [Unknown]
  - Pneumonitis [Unknown]

NARRATIVE: CASE EVENT DATE: 20170803
